FAERS Safety Report 25826785 (Version 1)
Quarter: 2025Q3

REPORT INFORMATION
  Report Type: Report from Study
  Country: US (occurrence: US)
  Receive Date: 20250920
  Receipt Date: 20250920
  Transmission Date: 20251020
  Serious: Yes (Other)
  Sender: UCB
  Company Number: US-UCBSA-2025057611

PATIENT
  Age: 25 Year
  Sex: Male
  Weight: 121.56 kg

DRUGS (1)
  1. FINTEPLA [Suspect]
     Active Substance: FENFLURAMINE
     Indication: Product used for unknown indication
     Dates: start: 20240206

REACTIONS (1)
  - Mitral valve thickening [Unknown]

NARRATIVE: CASE EVENT DATE: 20250821
